FAERS Safety Report 9868925 (Version 6)
Quarter: 2014Q2

REPORT INFORMATION
  Report Type: Spontaneous
  Country: US (occurrence: US)
  Receive Date: 20140204
  Receipt Date: 20140603
  Transmission Date: 20141212
  Serious: Yes (Hospitalization, Disabling, Other)
  Sender: FDA-Public Use
  Company Number: US-009507513-1107USA00011

PATIENT
  Sex: Female
  Weight: 63.39 kg

DRUGS (8)
  1. FOSAMAX [Suspect]
     Indication: OSTEOPOROSIS
     Dosage: 10 MG, UNK
     Route: 048
     Dates: start: 200004, end: 200103
  2. FOSAMAX [Suspect]
     Dosage: UNK
     Route: 048
     Dates: start: 19980201, end: 200004
  3. FOSAMAX [Suspect]
     Dosage: 70 MG, UNK
     Route: 048
     Dates: start: 200103, end: 200508
  4. FOSAMAX [Suspect]
     Dosage: 70 MG, QW
     Route: 048
     Dates: start: 20070501, end: 20101231
  5. FOSAMAX [Suspect]
     Dosage: UNK
     Route: 048
     Dates: start: 199802, end: 201105
  6. FOSAMAX PLUS D [Suspect]
     Indication: OSTEOPOROSIS
     Dosage: 70 MG, UNK
     Route: 048
     Dates: start: 20050802, end: 200704
  7. FOSAMAX PLUS D [Suspect]
     Dosage: 70 MG/2800IU, UNK
     Route: 048
     Dates: start: 20070524, end: 201012
  8. SYNTHROID [Concomitant]
     Indication: HYPOTHYROIDISM
     Dosage: UNK
     Dates: start: 1995

REACTIONS (65)
  - Femur fracture [Unknown]
  - Intramedullary rod insertion [Unknown]
  - Femur fracture [Unknown]
  - Intramedullary rod insertion [Unknown]
  - Hip fracture [Recovered/Resolved]
  - Carcinoid tumour [Unknown]
  - Hyponatraemia [Unknown]
  - Chest pain [Unknown]
  - Low turnover osteopathy [Not Recovered/Not Resolved]
  - Osteoporosis [Not Recovered/Not Resolved]
  - Pubis fracture [Unknown]
  - Salpingo-oophorectomy bilateral [Unknown]
  - Surgery [Unknown]
  - Cholecystectomy [Unknown]
  - Hysterectomy [Unknown]
  - Spinal compression fracture [Unknown]
  - Carcinoid tumour pulmonary [Unknown]
  - Partial lung resection [Unknown]
  - Hyponatraemia [Unknown]
  - Back pain [Unknown]
  - Upper limb fracture [Unknown]
  - Essential hypertension [Unknown]
  - Supraventricular tachycardia [Unknown]
  - Adverse event [Unknown]
  - Urinary retention [Unknown]
  - Escherichia urinary tract infection [Unknown]
  - Anaemia postoperative [Unknown]
  - Cataract operation [Unknown]
  - Urinary retention [Unknown]
  - Cataract [Unknown]
  - Hyponatraemia [Unknown]
  - Pulmonary mass [Unknown]
  - Mass excision [Unknown]
  - Urinary tract infection [Unknown]
  - Tenderness [Unknown]
  - Spinal osteoarthritis [Unknown]
  - Scoliosis [Unknown]
  - Spinal compression fracture [Unknown]
  - Mitral valve prolapse [Unknown]
  - Hyponatraemia [Unknown]
  - Cardiac murmur [Unknown]
  - Local swelling [Unknown]
  - Chills [Recovering/Resolving]
  - Hyperhidrosis [Recovered/Resolved]
  - Urinary tract infection [Unknown]
  - Supraventricular tachycardia [Recovering/Resolving]
  - Chest X-ray abnormal [Unknown]
  - Liver function test abnormal [Unknown]
  - Fibrin D dimer increased [Unknown]
  - Mitral valve incompetence [Unknown]
  - Transient ischaemic attack [Unknown]
  - Anaemia [Unknown]
  - Depression [Unknown]
  - Upper respiratory tract infection [Unknown]
  - Anxiety disorder [Unknown]
  - Dyspnoea [Unknown]
  - Paraesthesia [Unknown]
  - Fatigue [Unknown]
  - Laceration [Recovering/Resolving]
  - Asthenia [Unknown]
  - Back pain [Unknown]
  - Arthralgia [Unknown]
  - Musculoskeletal chest pain [Unknown]
  - Rash pruritic [Unknown]
  - Gastrooesophageal reflux disease [Unknown]
